FAERS Safety Report 10030898 (Version 2)
Quarter: 2014Q1

REPORT INFORMATION
  Report Type: Spontaneous
  Country: None (occurrence: US)
  Receive Date: 20140323
  Receipt Date: 20140323
  Transmission Date: 20141002
  Serious: No
  Sender: FDA-Public Use
  Company Number: US-ALLERGAN-1316760US

PATIENT
  Age: 63 Year
  Sex: Female

DRUGS (1)
  1. LATISSE 0.03% [Suspect]
     Indication: GROWTH OF EYELASHES
     Dosage: 2 GTT, UNK
     Route: 061
     Dates: start: 201305

REACTIONS (3)
  - Dark circles under eyes [Recovering/Resolving]
  - Inappropriate schedule of drug administration [Unknown]
  - Madarosis [Recovering/Resolving]
